FAERS Safety Report 19414992 (Version 1)
Quarter: 2021Q2

REPORT INFORMATION
  Report Type: Spontaneous
  Country: BR (occurrence: BR)
  Receive Date: 20210614
  Receipt Date: 20210614
  Transmission Date: 20210717
  Serious: Yes (Other)
  Sender: FDA-Public Use
  Company Number: NVSC2021BR130791

PATIENT
  Age: 72 Year
  Sex: Female

DRUGS (2)
  1. ESTRADOT [Suspect]
     Active Substance: ESTRADIOL
     Indication: INSOMNIA
     Dosage: 1 DF (AT LEAST 4 YEARS AGO)
     Route: 065
  2. ESTRADOT [Suspect]
     Active Substance: ESTRADIOL
     Indication: ILL-DEFINED DISORDER

REACTIONS (3)
  - Drug dependence [Unknown]
  - Product administration error [Unknown]
  - Product use in unapproved indication [Unknown]
